FAERS Safety Report 24289412 (Version 3)
Quarter: 2024Q4

REPORT INFORMATION
  Report Type: Spontaneous
  Country: US (occurrence: US)
  Receive Date: 20240906
  Receipt Date: 20241203
  Transmission Date: 20250115
  Serious: Yes (Other)
  Sender: HIKMA
  Company Number: US-HIKMA PHARMACEUTICALS USA INC.-US-H14001-24-07768

PATIENT
  Sex: Male

DRUGS (6)
  1. TESTOSTERONE CYPIONATE [Suspect]
     Active Substance: TESTOSTERONE CYPIONATE
     Indication: Androgen deficiency
     Dosage: 0.1 MILLILITER
     Route: 051
  2. TESTOSTERONE CYPIONATE [Suspect]
     Active Substance: TESTOSTERONE CYPIONATE
     Dosage: 0.2 MILLILITER IN WINTERTIME
     Route: 051
  3. TESTOSTERONE CYPIONATE [Suspect]
     Active Substance: TESTOSTERONE CYPIONATE
     Dosage: 0.3 MILLILITER
     Route: 051
  4. TESTOSTERONE CYPIONATE [Suspect]
     Active Substance: TESTOSTERONE CYPIONATE
     Dosage: 0.3 MILLILITER IN HOT SUMMER
     Route: 051
  5. TESTOSTERONE CYPIONATE [Suspect]
     Active Substance: TESTOSTERONE CYPIONATE
     Dosage: 0.4 MILLILITER IN HOT SUMMER
     Route: 051
  6. TESTOSTERONE CYPIONATE [Suspect]
     Active Substance: TESTOSTERONE CYPIONATE
     Dosage: UNK
     Route: 065
     Dates: start: 202401

REACTIONS (16)
  - Urinary incontinence [Recovered/Resolved]
  - Bedridden [Recovered/Resolved]
  - Dizziness [Recovered/Resolved]
  - Blood testosterone abnormal [Recovered/Resolved]
  - Sensory loss [Recovered/Resolved]
  - Neurogenic bladder [Recovered/Resolved]
  - Myalgia [Recovered/Resolved]
  - Headache [Recovered/Resolved]
  - Therapeutic product effect increased [Recovered/Resolved]
  - Treatment noncompliance [Unknown]
  - Intentional product use issue [Unknown]
  - Blood testosterone increased [Unknown]
  - Urinary tract disorder [Unknown]
  - Feeling hot [Unknown]
  - Product quality issue [Unknown]
  - Product substitution issue [Unknown]
